FAERS Safety Report 8165489-3 (Version None)
Quarter: 2012Q1

REPORT INFORMATION
  Report Type: 
  Country: None (occurrence: None)
  Receive Date: 20120227
  Receipt Date: 20120215
  Transmission Date: 20120608
  Serious: Yes (Other)
  Sender: FDA-Public Use
  Company Number: BR-JNJFOC-20120208618

PATIENT
  Sex: Male
  Weight: 55 kg

DRUGS (14)
  1. CIPROFLOXACIN [Concomitant]
     Route: 048
  2. VITAMIN B-12 [Concomitant]
     Route: 065
  3. REMICADE [Suspect]
     Route: 042
     Dates: start: 20101203
  4. OMEPRAZOLE [Concomitant]
     Route: 048
  5. ACETAMINOPHEN [Concomitant]
     Route: 048
  6. METRONIDAZOLE [Concomitant]
     Route: 048
  7. SCOPOLAMINE [Concomitant]
     Dosage: DOSAGE: 35 DROP
     Route: 048
  8. SPIRONOLACTONE [Concomitant]
     Route: 048
  9. NORIPURUM [Concomitant]
     Route: 065
  10. REMICADE [Suspect]
     Indication: CROHN'S DISEASE
     Route: 042
     Dates: start: 20111104
  11. MEBEVERINE [Concomitant]
     Route: 048
  12. FUROSEMIDE [Concomitant]
     Route: 048
  13. VITAMIN A AND D [Concomitant]
     Dosage: 5 DROPS
     Route: 048
  14. POTASSIUM CHLORIDE [Concomitant]
     Route: 048

REACTIONS (3)
  - ANAEMIA [None]
  - INFUSION RELATED REACTION [None]
  - TACHYCARDIA [None]
